FAERS Safety Report 6208974-3 (Version None)
Quarter: 2009Q2

REPORT INFORMATION
  Report Type: 
  Country: None (occurrence: None)
  Receive Date: 20090529
  Receipt Date: 20090519
  Transmission Date: 20091009
  Serious: Yes (Death, Hospitalization)
  Sender: FDA-Public Use
  Company Number: GB-ABBOTT-09P-167-0564655-00

PATIENT
  Sex: Female
  Weight: 112 kg

DRUGS (5)
  1. KALETRA [Suspect]
     Indication: ANTIRETROVIRAL THERAPY
     Dosage: 400/100
     Route: 048
     Dates: start: 20090216, end: 20090301
  2. ETRAVIRINE [Suspect]
     Indication: ANTIRETROVIRAL THERAPY
     Dates: start: 20090129, end: 20090301
  3. DARUNAVIR [Suspect]
     Indication: ANTIRETROVIRAL THERAPY
     Route: 048
     Dates: start: 20090129, end: 20090216
  4. RALTEGRAVIR [Concomitant]
     Indication: ANTIRETROVIRAL THERAPY
     Route: 048
     Dates: start: 20090129, end: 20090301
  5. RITONAVIR [Concomitant]
     Indication: ANTIRETROVIRAL THERAPY
     Dates: start: 20090129, end: 20090216

REACTIONS (11)
  - EYE DISCHARGE [None]
  - EYE DISORDER [None]
  - MOUTH ULCERATION [None]
  - NEUROPATHY PERIPHERAL [None]
  - ORAL DISORDER [None]
  - PRURITUS [None]
  - PYREXIA [None]
  - RASH [None]
  - RASH MACULO-PAPULAR [None]
  - TOXIC EPIDERMAL NECROLYSIS [None]
  - VISUAL IMPAIRMENT [None]
